FAERS Safety Report 7980319-8 (Version None)
Quarter: 2011Q4

REPORT INFORMATION
  Report Type: 
  Country: None (occurrence: None)
  Receive Date: 20111214
  Receipt Date: 20111122
  Transmission Date: 20120403
  Serious: Yes (Other)
  Sender: FDA-Public Use
  Company Number: PHHY2011GB103618

PATIENT

DRUGS (2)
  1. CETIRIZINE HCL [Suspect]
     Dosage: UNK
     Route: 048
  2. OMEPRAZOLE [Concomitant]

REACTIONS (2)
  - INTENTIONAL DRUG MISUSE [None]
  - WRONG TECHNIQUE IN DRUG USAGE PROCESS [None]
